FAERS Safety Report 11615218 (Version 1)
Quarter: 2015Q4

REPORT INFORMATION
  Report Type: Spontaneous
  Country: US (occurrence: None)
  Receive Date: 20151008
  Receipt Date: 20151008
  Transmission Date: 20160304
  Serious: Yes (Disabling)
  Sender: FDA-Public Use
  Company Number: None

PATIENT
  Age: 60 Year
  Sex: Female
  Weight: 145.15 kg

DRUGS (5)
  1. VICTOZA [Suspect]
     Active Substance: LIRAGLUTIDE
     Indication: DIABETES MELLITUS
     Dosage: 1.6 ONCE DAILY INJECTION PEN
  2. ARMOUR THYROID [Concomitant]
     Active Substance: THYROID, PORCINE\THYROID, UNSPECIFIED
  3. MULTIVITAMIN [Concomitant]
     Active Substance: VITAMINS
  4. MAGNESIUM [Concomitant]
     Active Substance: MAGNESIUM
  5. HUMALOG FAST ACTING INSULIN [Concomitant]

REACTIONS (5)
  - Abdominal distension [None]
  - Glycosylated haemoglobin increased [None]
  - Autoimmune thyroiditis [None]
  - Gastrointestinal pain [None]
  - Flatulence [None]

NARRATIVE: CASE EVENT DATE: 20150801
